FAERS Safety Report 6836190-0 (Version None)
Quarter: 2010Q3

REPORT INFORMATION
  Report Type: 
  Country: None (occurrence: None)
  Receive Date: 20100713
  Receipt Date: 20100701
  Transmission Date: 20110219
  Serious: Yes (Hospitalization)
  Sender: FDA-Public Use
  Company Number: US-GENZYME-POMP-1000993

PATIENT
  Sex: Female
  Weight: 13.8 kg

DRUGS (11)
  1. MYOZYME [Suspect]
     Indication: GLYCOGEN STORAGE DISEASE TYPE II
     Dosage: 350 MG, Q2W
     Route: 042
     Dates: start: 20081231
  2. ALBUTEROL [Concomitant]
     Indication: BRONCHIAL DISORDER
     Dosage: 2.5 MG, BID
     Route: 055
     Dates: start: 20090106
  3. PULMICORT [Concomitant]
     Indication: RESPIRATORY TRACT INFLAMMATION
     Dosage: 0.25 MG, BID
     Route: 055
     Dates: start: 20090106
  4. ATENOLOL [Concomitant]
     Indication: HYPERTENSION
     Dosage: 0.25 MG, BID
     Route: 050
     Dates: start: 20090106
  5. FERROUS SULFATE [Concomitant]
     Indication: BLOOD IRON DECREASED
     Dosage: 20 MG, BID
     Route: 050
     Dates: start: 20090106
  6. CLARITIN [Concomitant]
     Indication: HYPERSENSITIVITY
     Dosage: 4 MG, QD
     Route: 050
     Dates: start: 20090106
  7. MAXITROL [Concomitant]
     Indication: PRODUCT USED FOR UNKNOWN INDICATION
     Dosage: UNK UNK, PRN
     Route: 061
     Dates: start: 20090106
  8. MULTIVIT [Concomitant]
     Indication: PRODUCT USED FOR UNKNOWN INDICATION
     Dosage: 1 U, QD
     Route: 050
     Dates: start: 20090106
  9. MIRALAX [Concomitant]
     Indication: CONSTIPATION
     Dosage: 4.25 MG, QOD
     Route: 050
     Dates: start: 20090106
  10. BACTROBAN [Concomitant]
     Indication: PRODUCT USED FOR UNKNOWN INDICATION
     Dosage: UNK UNK, BID
     Route: 061
     Dates: start: 20090106
  11. PREVACID [Concomitant]
     Indication: GASTROOESOPHAGEAL REFLUX DISEASE
     Dosage: 15 MG, BID
     Route: 050
     Dates: start: 20090106

REACTIONS (8)
  - DIARRHOEA [None]
  - FEEDING DISORDER [None]
  - INCREASED UPPER AIRWAY SECRETION [None]
  - LOBAR PNEUMONIA [None]
  - OTITIS MEDIA [None]
  - PYREXIA [None]
  - RESPIRATORY FAILURE [None]
  - VOMITING [None]
